FAERS Safety Report 4840143-1 (Version None)
Quarter: 2005Q4

REPORT INFORMATION
  Report Type: 
  Country: None (occurrence: None)
  Receive Date: 20051129
  Receipt Date: 20051118
  Transmission Date: 20060501
  Serious: Yes (Hospitalization)
  Sender: FDA-Public Use
  Company Number: US-AVENTIS-200519543US

PATIENT
  Age: 83 Year
  Sex: Male

DRUGS (7)
  1. LANTUS [Suspect]
     Indication: DIABETES MELLITUS
     Dosage: DOSE: 10-18; DOSE UNIT: UNITS
     Route: 051
  2. AMARYL [Concomitant]
  3. ACTOS [Concomitant]
     Dosage: DOSE: UNKNOWN
  4. LOPRESSOR [Concomitant]
     Dosage: DOSE: UNKNOWN
  5. LASIX [Concomitant]
     Dosage: DOSE: UNKNOWN
  6. NORVASC [Concomitant]
     Dosage: DOSE: UNKNOWN
  7. ISOSORBIDE MN [Concomitant]
     Dosage: DOSE: UNKNOWN

REACTIONS (4)
  - BLOOD GLUCOSE DECREASED [None]
  - BLOOD GLUCOSE INCREASED [None]
  - OEDEMA PERIPHERAL [None]
  - PROSTATE INFECTION [None]
